FAERS Safety Report 24163964 (Version 1)
Quarter: 2024Q3

REPORT INFORMATION
  Report Type: Spontaneous
  Country: US (occurrence: US)
  Receive Date: 20240801
  Receipt Date: 20240801
  Transmission Date: 20241016
  Serious: Yes (Other)
  Sender: UPSHER-SMITH
  Company Number: US-UPSHER-SMITH LABORATORIES, LLC-2023USL00948

PATIENT

DRUGS (1)
  1. VIGADRONE [Suspect]
     Active Substance: VIGABATRIN
     Indication: Epilepsy
     Dosage: ADMINISTER 500 MG (10 ML) BY G-TUBE EVERY MORNING AND ADMINISTER 250 MG (5 ML) EVERY EVENING
     Route: 048
     Dates: start: 20181222

REACTIONS (1)
  - Visual field defect [Unknown]
